FAERS Safety Report 9813012 (Version 1)
Quarter: 2014Q1

REPORT INFORMATION
  Report Type: Spontaneous
  Country: US (occurrence: None)
  Receive Date: 20140109
  Receipt Date: 20140109
  Transmission Date: 20141002
  Serious: Yes (Other)
  Sender: FDA-Public Use
  Company Number: None

PATIENT
  Age: 28 Year
  Sex: Female
  Weight: 65.77 kg

DRUGS (1)
  1. HUMIRA [Suspect]
     Indication: PSORIASIS
     Route: 030

REACTIONS (11)
  - Urticaria [None]
  - Lip swelling [None]
  - Pharyngeal oedema [None]
  - Chest pain [None]
  - Abdominal pain [None]
  - Diarrhoea [None]
  - Heart rate increased [None]
  - Decreased appetite [None]
  - Dysuria [None]
  - Asthenia [None]
  - Fatigue [None]
